FAERS Safety Report 18156628 (Version 2)
Quarter: 2020Q4

REPORT INFORMATION
  Report Type: Spontaneous
  Country: JP (occurrence: JP)
  Receive Date: 20200817
  Receipt Date: 20201026
  Transmission Date: 20210113
  Serious: Yes (Death)
  Sender: FDA-Public Use
  Company Number: NVSJ2020JP007753

PATIENT

DRUGS (7)
  1. TEGRETOL [Suspect]
     Active Substance: CARBAMAZEPINE
     Indication: FOETAL EXPOSURE DURING PREGNANCY
     Dosage: UNK UNK, TID
     Route: 064
     Dates: start: 20180320, end: 20200317
  2. TEGRETOL [Suspect]
     Active Substance: CARBAMAZEPINE
     Dosage: UNK UNK, QID
     Route: 064
     Dates: start: 20200317
  3. FEXOFENADINE HYDROCHLORIDE. [Concomitant]
     Active Substance: FEXOFENADINE HYDROCHLORIDE
     Indication: FOETAL EXPOSURE DURING PREGNANCY
     Dosage: UNK, BID
     Route: 064
     Dates: start: 20200213, end: 20200317
  4. MAGMITT [Concomitant]
     Active Substance: MAGNESIUM OXIDE
     Indication: FOETAL EXPOSURE DURING PREGNANCY
     Dosage: UNK UNK, BID
     Route: 064
     Dates: start: 20180320, end: 20200314
  5. UTEMERIN [Concomitant]
     Active Substance: RITODRINE
     Indication: FOETAL EXPOSURE DURING PREGNANCY
     Dosage: UNK UNK, QID
     Route: 064
     Dates: start: 20200206, end: 20200305
  6. CALONAL [Concomitant]
     Active Substance: ACETAMINOPHEN
     Indication: FOETAL EXPOSURE DURING PREGNANCY
     Dosage: UNK
     Route: 064
     Dates: start: 20191212
  7. FLUNITRAZEPAM [Concomitant]
     Active Substance: FLUNITRAZEPAM
     Indication: FOETAL EXPOSURE DURING PREGNANCY
     Dosage: UNK UNK, QD
     Route: 064
     Dates: start: 20180320, end: 20200314

REACTIONS (1)
  - Foetal growth restriction [Fatal]

NARRATIVE: CASE EVENT DATE: 20200310
